FAERS Safety Report 5067875-7 (Version None)
Quarter: 2006Q3

REPORT INFORMATION
  Report Type: 
  Country: None (occurrence: None)
  Receive Date: 20060717
  Receipt Date: 20051123
  Transmission Date: 20061208
  Serious: Yes (Death)
  Sender: FDA-Public Use
  Company Number: 2005002285

PATIENT
  Sex: Male

DRUGS (1)
  1. TARCEVA [Suspect]
     Indication: SMALL CELL LUNG CANCER STAGE UNSPECIFIED
     Dosage: ORAL
     Route: 048
     Dates: start: 20050601, end: 20050901

REACTIONS (3)
  - DISEASE PROGRESSION [None]
  - ERYTHEMA [None]
  - MALIGNANT NEOPLASM PROGRESSION [None]
